FAERS Safety Report 5534302-2 (Version None)
Quarter: 2007Q4

REPORT INFORMATION
  Report Type: 
  Country: None (occurrence: None)
  Receive Date: 20071205
  Receipt Date: 20071123
  Transmission Date: 20080405
  Serious: Yes (Hospitalization)
  Sender: FDA-Public Use
  Company Number: FR-ROCHE-493364

PATIENT
  Age: 70 Year
  Sex: Female
  Weight: 57.8 kg

DRUGS (6)
  1. MYCOPHENOLATE MOFETIL [Suspect]
     Route: 048
     Dates: start: 20070322, end: 20070412
  2. MYCOPHENOLATE MOFETIL [Suspect]
     Route: 048
     Dates: start: 20070518
  3. NEORAL [Concomitant]
     Dates: start: 20070412
  4. HUMALOG [Concomitant]
     Dates: start: 20070412
  5. 1 CONCOMITANT DRUG [Concomitant]
     Dosage: DRUG NAME: AMCOR.
  6. ATARAX [Concomitant]

REACTIONS (1)
  - CYTOMEGALOVIRUS INFECTION [None]
